FAERS Safety Report 20819417 (Version 1)
Quarter: 2022Q2

REPORT INFORMATION
  Report Type: Spontaneous
  Country: US (occurrence: None)
  Receive Date: 20220511
  Receipt Date: 20220511
  Transmission Date: 20220721
  Serious: Yes (Other)
  Sender: FDA-Public Use
  Company Number: None

PATIENT
  Age: 68 Year
  Sex: Female
  Weight: 45.45 kg

DRUGS (10)
  1. ZYRTEC [Suspect]
     Active Substance: CETIRIZINE HYDROCHLORIDE
     Indication: Seasonal allergy
     Dates: start: 20180301, end: 20210601
  2. ZYRTEC [Suspect]
     Active Substance: CETIRIZINE HYDROCHLORIDE
     Indication: Multiple allergies
  3. ESTRADIOL [Concomitant]
     Active Substance: ESTRADIOL
  4. PROGESTERONE [Concomitant]
     Active Substance: PROGESTERONE
  5. VENLAFAXINE [Concomitant]
     Active Substance: VENLAFAXINE HYDROCHLORIDE
  6. VITAMIN B COMPLEX [Concomitant]
     Active Substance: CYANOCOBALAMIN\DEXPANTHENOL\NIACINAMIDE\PYRIDOXINE HYDROCHLORIDE\RIBOFLAVIN 5^-PHOSPHATE SODIUM\THIA
  7. LUTEIN [Concomitant]
     Active Substance: LUTEIN
  8. VITAMIN C [Concomitant]
     Active Substance: ASCORBIC ACID
  9. MAGNESIUM [Concomitant]
     Active Substance: MAGNESIUM
  10. COLLAGEN [Concomitant]
     Active Substance: COLLAGEN

REACTIONS (1)
  - Pruritus [None]

NARRATIVE: CASE EVENT DATE: 20210601
